FAERS Safety Report 5575545-1 (Version None)
Quarter: 2007Q4

REPORT INFORMATION
  Report Type: 
  Country: None (occurrence: None)
  Receive Date: 20071226
  Receipt Date: 20071211
  Transmission Date: 20080405
  Serious: Yes (Hospitalization)
  Sender: FDA-Public Use
  Company Number: 021857

PATIENT
  Age: 57 Year
  Sex: Male

DRUGS (5)
  1. ANTABUSE [Suspect]
     Indication: ALCOHOLISM
     Dosage: ORAL
     Route: 048
  2. ATORVASTATIN CALCIUM [Concomitant]
  3. EZETIMIBE [Concomitant]
  4. VENLAFAXINE HCL [Concomitant]
  5. PANTOPRAZOLE SODIUM [Concomitant]

REACTIONS (6)
  - HEADACHE [None]
  - HYPOAESTHESIA [None]
  - NEUROPATHY PERIPHERAL [None]
  - OPTIC NEUROPATHY [None]
  - PARAESTHESIA [None]
  - VISUAL ACUITY REDUCED [None]
